FAERS Safety Report 4498510-4 (Version None)
Quarter: 2004Q4

REPORT INFORMATION
  Report Type: 
  Country: None (occurrence: None)
  Receive Date: 20041105
  Receipt Date: 20041027
  Transmission Date: 20050328
  Serious: Yes (Death)
  Sender: FDA-Public Use
  Company Number: S04-USA-07131-01

PATIENT

DRUGS (2)
  1. CELEXA [Suspect]
  2. DEMEROL [Suspect]
     Indication: PAIN

REACTIONS (4)
  - ANALGESIC DRUG LEVEL INCREASED [None]
  - DRUG INTERACTION [None]
  - RESPIRATORY FAILURE [None]
  - SURGERY [None]
